FAERS Safety Report 8167006-0 (Version None)
Quarter: 2012Q1

REPORT INFORMATION
  Report Type: 
  Country: None (occurrence: None)
  Receive Date: 20120227
  Receipt Date: 20120222
  Transmission Date: 20120608
  Serious: Yes (Hospitalization)
  Sender: FDA-Public Use
  Company Number: US-JNJFOC-20120103452

PATIENT
  Sex: Male

DRUGS (3)
  1. LEVAQUIN [Suspect]
     Indication: INFECTION
     Dosage: ONCE DAILY
     Route: 048
     Dates: start: 20111231, end: 20120101
  2. NUCYNTA ER [Suspect]
     Indication: PAIN
     Dosage: ONCE EVERY 4 HOURS
     Route: 048
     Dates: start: 20111222, end: 20111229
  3. LEVAQUIN [Suspect]
     Indication: CATHETER REMOVAL
     Dosage: ONCE DAILY
     Route: 048
     Dates: start: 20111231, end: 20120101

REACTIONS (1)
  - DYSKINESIA [None]
